FAERS Safety Report 23672698 (Version 2)
Quarter: 2024Q2

REPORT INFORMATION
  Report Type: Spontaneous
  Country: DE (occurrence: DE)
  Receive Date: 20240326
  Receipt Date: 20240402
  Transmission Date: 20240716
  Serious: Yes (Other)
  Sender: FDA-Public Use
  Company Number: DE-TEVA-VS-3173559

PATIENT
  Age: 60 Year
  Sex: Male

DRUGS (1)
  1. DIAZEPAM [Suspect]
     Active Substance: DIAZEPAM
     Indication: Product used for unknown indication
     Route: 048

REACTIONS (6)
  - Drug dependence [Unknown]
  - Cerebrovascular accident [Unknown]
  - Mouth haemorrhage [Unknown]
  - Ear haemorrhage [Unknown]
  - Epistaxis [Unknown]
  - Asphyxia [Unknown]

NARRATIVE: CASE EVENT DATE: 20170101
